FAERS Safety Report 5222431-2 (Version None)
Quarter: 2007Q1

REPORT INFORMATION
  Report Type: 
  Country: None (occurrence: None)
  Receive Date: 20070129
  Receipt Date: 20070129
  Transmission Date: 20070707
  Serious: Yes (Hospitalization)
  Sender: FDA-Public Use
  Company Number: PHHO2004US13317

PATIENT
  Age: 38 Year
  Sex: Female
  Weight: 110 kg

DRUGS (5)
  1. HUMATE-P [Concomitant]
     Indication: VON WILLEBRAND'S DISEASE
     Dosage: UNK, PRN
     Route: 042
     Dates: start: 19810101
  2. ULTRAM [Concomitant]
     Indication: MIGRAINE
     Dosage: UNK, PRN
     Dates: start: 20030101
  3. TOPAMAX [Concomitant]
     Indication: MIGRAINE
     Dosage: 25 MG, UNK
     Dates: start: 20040826
  4. DECADRON [Concomitant]
     Indication: MIGRAINE
     Dosage: 5 MG, QD
     Dates: start: 20040826
  5. TEGASEROD VS PLACEBO [Suspect]
     Indication: DYSPEPSIA
     Dosage: 6 MG, BID
     Route: 048
     Dates: start: 20040827

REACTIONS (5)
  - ABDOMINAL PAIN [None]
  - MASS EXCISION [None]
  - OOPHORECTOMY [None]
  - OVARIAN CYST [None]
  - OVARIAN MASS [None]
